FAERS Safety Report 5833526-4 (Version None)
Quarter: 2008Q3

REPORT INFORMATION
  Report Type: 
  Country: None (occurrence: None)
  Receive Date: 20080805
  Receipt Date: 20080722
  Transmission Date: 20090109
  Serious: Yes (Other)
  Sender: FDA-Public Use
  Company Number: PHEH2008US06559

PATIENT
  Sex: Female

DRUGS (1)
  1. MIACALCIN [Suspect]

REACTIONS (6)
  - BLOOD CALCIUM INCREASED [None]
  - BODY HEIGHT DECREASED [None]
  - MALAISE [None]
  - MENTAL IMPAIRMENT [None]
  - MOBILITY DECREASED [None]
  - PARATHYROIDECTOMY [None]
